FAERS Safety Report 11873507 (Version 1)
Quarter: 2015Q4

REPORT INFORMATION
  Report Type: Spontaneous
  Country: CN (occurrence: CN)
  Receive Date: 20151228
  Receipt Date: 20151228
  Transmission Date: 20160305
  Serious: Yes (Other)
  Sender: FDA-Public Use
  Company Number: CN-ABBVIE-15P-035-1527995-00

PATIENT
  Age: 34 Year
  Sex: Male

DRUGS (1)
  1. DEPAKINE CHRONO [Suspect]
     Active Substance: VALPROATE SODIUM
     Indication: EPILEPSY
     Dosage: EXTENDED RELEASE
     Route: 048
     Dates: start: 2014

REACTIONS (5)
  - Epilepsy [Recovered/Resolved]
  - Suspected counterfeit product [Recovered/Resolved]
  - Nausea [Recovered/Resolved]
  - Salivary hypersecretion [Recovered/Resolved]
  - Hypoaesthesia [Recovered/Resolved]
